FAERS Safety Report 7440487-3 (Version None)
Quarter: 2011Q2

REPORT INFORMATION
  Report Type: 
  Country: None (occurrence: None)
  Receive Date: 20110427
  Receipt Date: 20110425
  Transmission Date: 20111010
  Serious: Yes (Death, Hospitalization, Other)
  Sender: FDA-Public Use
  Company Number: US-ELI_LILLY_AND_COMPANY-US201102007040

PATIENT
  Sex: Female

DRUGS (3)
  1. LEVEMIR [Concomitant]
  2. NOVOLOG [Concomitant]
  3. HUMALOG [Suspect]
     Indication: DIABETES MELLITUS
     Dosage: UNK, AS NEEDED

REACTIONS (7)
  - FALL [None]
  - INCORRECT DOSE ADMINISTERED [None]
  - CARDIAC DISORDER [None]
  - UPPER LIMB FRACTURE [None]
  - DEATH [None]
  - CHRONIC OBSTRUCTIVE PULMONARY DISEASE [None]
  - ARTHROPATHY [None]
